FAERS Safety Report 6896955-6 (Version None)
Quarter: 2010Q3

REPORT INFORMATION
  Report Type: 
  Country: None (occurrence: None)
  Receive Date: 20100802
  Receipt Date: 20070309
  Transmission Date: 20110219
  Serious: No
  Sender: FDA-Public Use
  Company Number: US-PFIZER INC-2007020411

PATIENT
  Sex: Male
  Weight: 53.5 kg

DRUGS (4)
  1. LYRICA [Suspect]
     Indication: CARPAL TUNNEL SYNDROME
     Dates: start: 20060301
  2. ATENOLOL [Concomitant]
  3. TRIAMTERENE [Concomitant]
  4. CLIDINIUM [Concomitant]
     Indication: GASTROINTESTINAL DISORDER

REACTIONS (3)
  - SEMEN ANALYSIS ABNORMAL [None]
  - SEMEN VOLUME DECREASED [None]
  - SEXUAL DYSFUNCTION [None]
